FAERS Safety Report 7483173-6 (Version None)
Quarter: 2011Q2

REPORT INFORMATION
  Report Type: 
  Country: None (occurrence: None)
  Receive Date: 20110516
  Receipt Date: 20100731
  Transmission Date: 20111010
  Serious: No
  Sender: FDA-Public Use
  Company Number: US-AMGEN-KDL428211

PATIENT
  Sex: Female

DRUGS (10)
  1. FOLIC ACID [Concomitant]
     Dosage: UNK UNK, UNK
  2. SERTRALINE HYDROCHLORIDE [Concomitant]
     Dosage: 50 MG, UNK
  3. OMEPRAZOLE [Concomitant]
     Dosage: UNK UNK, UNK
  4. DOCETAXEL [Concomitant]
     Dosage: UNK UNK, UNK
  5. LEVOTHYROXINE SODIUM [Concomitant]
     Dosage: UNK UNK, UNK
  6. ATENOLOL [Concomitant]
     Dosage: 10 MG, UNK
  7. CARBOPLATIN [Concomitant]
     Dosage: UNK UNK, UNK
  8. UNSPECIFIED MEDICATION [Concomitant]
     Dosage: UNK UNK, UNK
  9. NEULASTA [Suspect]
     Indication: CHEMOTHERAPY
     Dosage: UNK UNK, Q3WK
     Route: 058
  10. GEMCITABINE HCL [Concomitant]
     Dosage: UNK UNK, UNK

REACTIONS (3)
  - BONE PAIN [None]
  - INFLUENZA LIKE ILLNESS [None]
  - PAIN [None]
